FAERS Safety Report 9800321 (Version 2)
Quarter: 2014Q1

REPORT INFORMATION
  Report Type: Spontaneous
  Country: US (occurrence: US)
  Receive Date: 20140106
  Receipt Date: 20140106
  Transmission Date: 20141002
  Serious: Yes (Other)
  Sender: FDA-Public Use
  Company Number: US-GE HEALTHCARE MEDICAL DIAGNOSTICS-OSCN-PR-1001S-0003

PATIENT
  Age: 66 Year
  Sex: Female

DRUGS (8)
  1. OMNISCAN [Suspect]
     Indication: PRODUCT USED FOR UNKNOWN INDICATION
     Route: 042
     Dates: start: 20030604, end: 20030604
  2. OMNISCAN [Suspect]
     Indication: PRODUCT USED FOR UNKNOWN INDICATION
     Route: 042
     Dates: start: 20040920, end: 20040920
  3. OMNISCAN [Suspect]
     Indication: PRODUCT USED FOR UNKNOWN INDICATION
     Route: 042
     Dates: start: 20050124, end: 20050124
  4. OMNISCAN [Suspect]
     Indication: PRODUCT USED FOR UNKNOWN INDICATION
     Route: 042
     Dates: start: 20050222, end: 20050222
  5. GADOLINIUM (UNSPECIFIED) [Suspect]
     Dates: start: 20030604, end: 20030604
  6. GADOLINIUM (UNSPECIFIED) [Suspect]
     Dates: start: 20040920, end: 20040920
  7. GADOLINIUM (UNSPECIFIED) [Suspect]
     Dates: start: 20050124, end: 20050124
  8. GADOLINIUM (UNSPECIFIED) [Suspect]
     Dates: start: 20050222, end: 20050222

REACTIONS (1)
  - Nephrogenic systemic fibrosis [Not Recovered/Not Resolved]
